FAERS Safety Report 6579352-2 (Version None)
Quarter: 2010Q1

REPORT INFORMATION
  Report Type: 
  Country: None (occurrence: None)
  Receive Date: 20100212
  Receipt Date: 20100203
  Transmission Date: 20100710
  Serious: Yes (Hospitalization)
  Sender: FDA-Public Use
  Company Number: DE-WYE-H13439410

PATIENT
  Sex: Female
  Weight: 75 kg

DRUGS (7)
  1. RIFUN [Suspect]
     Dosage: OVERDOSE AMOUNT 1 DOSE FORM 40 MG
     Route: 048
  2. ACETYLSALICYLIC ACID [Suspect]
     Dosage: OVERDOSE AMOUNT 100 MG
     Route: 048
  3. TRAZODONE [Suspect]
     Dosage: OVERDOSE AMOUNT  (2 TABLETS) TOTAL 200 MG
     Route: 048
  4. METOHEXAL [Suspect]
     Dosage: OVERDOSE AMOUNT 50 MG
     Route: 048
  5. TRANXILIUM [Suspect]
     Dosage: OVERDOSE AMOUNT 5 MG
     Route: 048
  6. AMITRIPTYLINE HCL [Suspect]
     Dosage: 25 MG OVERDOSE AMOUNT
     Route: 048
  7. METFORMIN [Suspect]
     Dosage: OVERDOSE AMOUNT (2 TABLETS) TOTAL 2000 MG
     Route: 048

REACTIONS (2)
  - INTENTIONAL OVERDOSE [None]
  - INTENTIONAL SELF-INJURY [None]
